FAERS Safety Report 7959058-5 (Version None)
Quarter: 2011Q4

REPORT INFORMATION
  Report Type: 
  Country: None (occurrence: None)
  Receive Date: 20111206
  Receipt Date: 20110824
  Transmission Date: 20120403
  Serious: No
  Sender: FDA-Public Use
  Company Number: US-GLAXOSMITHKLINE-A0943230A

PATIENT

DRUGS (1)
  1. LAMOTRIGINE [Suspect]
     Indication: ILL-DEFINED DISORDER
     Dosage: 200MG TWICE PER DAY
     Route: 065
     Dates: start: 20110701, end: 20110101

REACTIONS (1)
  - DRUG PRESCRIBING ERROR [None]
